FAERS Safety Report 6322726-5 (Version None)
Quarter: 2009Q3

REPORT INFORMATION
  Report Type: 
  Country: None (occurrence: None)
  Receive Date: 20090824
  Receipt Date: 20090813
  Transmission Date: 20100115
  Serious: Yes (Hospitalization)
  Sender: FDA-Public Use
  Company Number: FR-WYE-H10659509

PATIENT
  Sex: Male

DRUGS (10)
  1. CORDARONE [Suspect]
     Route: 048
  2. PREVISCAN [Interacting]
     Indication: ARRHYTHMIA
     Route: 048
     Dates: start: 20090101, end: 20090124
  3. PREVISCAN [Interacting]
     Indication: ATRIAL FIBRILLATION
  4. TAHOR [Interacting]
     Route: 048
  5. SELOKEN [Concomitant]
     Route: 048
  6. EZETROL [Concomitant]
     Dosage: UNSPECIFIED
     Route: 048
  7. LANSOPRAZOLE [Concomitant]
     Dosage: UNSPECIFIED
     Route: 048
  8. IKOREL [Concomitant]
     Route: 048
  9. KARDEGIC [Interacting]
     Route: 048
  10. LEVOTHYROXINE SODIUM [Interacting]
     Route: 048

REACTIONS (3)
  - DRUG INTERACTION [None]
  - HAEMOPTYSIS [None]
  - INTERNATIONAL NORMALISED RATIO INCREASED [None]
